FAERS Safety Report 5062353-3 (Version None)
Quarter: 2006Q3

REPORT INFORMATION
  Report Type: 
  Country: None (occurrence: None)
  Receive Date: 20060726
  Receipt Date: 20060721
  Transmission Date: 20061208
  Serious: Yes (Life-Threatening, Hospitalization, Disabling, Other)
  Sender: FDA-Public Use
  Company Number: US-GLAXOSMITHKLINE-A0613109A

PATIENT
  Age: 37 Year
  Sex: Male

DRUGS (1)
  1. COREG [Suspect]
     Indication: CARDIOMYOPATHY
     Dosage: 50TAB SINGLE DOSE
     Route: 048

REACTIONS (2)
  - HYPOTENSION [None]
  - OVERDOSE [None]
